FAERS Safety Report 21622999 (Version 2)
Quarter: 2022Q4

REPORT INFORMATION
  Report Type: Spontaneous
  Country: US (occurrence: US)
  Receive Date: 20221121
  Receipt Date: 20221202
  Transmission Date: 20230113
  Serious: Yes (Hospitalization)
  Sender: FDA-Public Use
  Company Number: US-RIGEL PHARMACEUTICALS, INC.-2022FOS000924

PATIENT
  Sex: Male
  Weight: 68.39 kg

DRUGS (1)
  1. TAVALISSE [Suspect]
     Active Substance: FOSTAMATINIB
     Indication: Immune thrombocytopenia
     Dosage: 150 MG, BID
     Route: 048
     Dates: start: 20220820

REACTIONS (6)
  - Respiratory syncytial virus infection [Recovered/Resolved]
  - Thrombosis [Recovering/Resolving]
  - Insomnia [Unknown]
  - Heart rate increased [Unknown]
  - Tremor [Unknown]
  - Daydreaming [Unknown]

NARRATIVE: CASE EVENT DATE: 20220101
